FAERS Safety Report 9109711 (Version 1)
Quarter: 2013Q1

REPORT INFORMATION
  Report Type: Spontaneous
  Country: FR (occurrence: FR)
  Receive Date: 20130222
  Receipt Date: 20130222
  Transmission Date: 20140127
  Serious: Yes (Hospitalization)
  Sender: FDA-Public Use
  Company Number: FR-PFIZER INC-2013060793

PATIENT
  Age: 50 Year
  Sex: Female

DRUGS (7)
  1. SALAZOPYRINE [Suspect]
     Indication: MUSCULOSKELETAL PAIN
     Dosage: 500 MG, 1X/DAY
     Route: 048
     Dates: start: 20121115
  2. SALAZOPYRINE [Suspect]
     Dosage: 1500 MG DAILY
     Route: 048
     Dates: start: 201211
  3. SALAZOPYRINE [Suspect]
     Dosage: 1000 MG DAILY
     Route: 048
     Dates: start: 20121225, end: 20121228
  4. BI-PROFENID [Concomitant]
  5. LAMALINE [Concomitant]
  6. IMOVANE [Concomitant]
  7. ARTELAC [Concomitant]

REACTIONS (6)
  - Rash erythematous [Recovered/Resolved]
  - Pruritus [Recovered/Resolved]
  - Pyrexia [Recovered/Resolved]
  - Face oedema [Recovered/Resolved]
  - Liver function test abnormal [Recovered/Resolved]
  - Lymphocytosis [Recovered/Resolved]
